FAERS Safety Report 9184041 (Version 1)
Quarter: 2013Q1

REPORT INFORMATION
  Report Type: Spontaneous
  Country: US (occurrence: US)
  Receive Date: 20130322
  Receipt Date: 20130322
  Transmission Date: 20140127
  Serious: No
  Sender: FDA-Public Use
  Company Number: US-BRISTOL-MYERS SQUIBB COMPANY-16714131

PATIENT
  Age: 80 Year
  Sex: Female
  Weight: 66.66 kg

DRUGS (14)
  1. ERBITUX [Suspect]
     Indication: COLON CANCER
     Dosage: INTRP + RESTR WITH REDUCED BY 30-40% OF THE ORIGINAL DOSE,676MG,INTRP, RESTARTED 09JUL2012
     Route: 042
     Dates: start: 20120615
  2. IRINOTECAN [Suspect]
  3. SYNTHROID [Concomitant]
     Dosage: THERAPY DATES:28JUL10,8DEC10,28MAR11,20APR11,15JUN11
     Dates: start: 20100728
  4. ZANTAC [Concomitant]
     Dosage: THERAPY DATES:28JUL10,8DEC10,28MAR11,20APR11,15JUN11
  5. INDERAL [Concomitant]
     Dosage: THERAPY DATES:28JUL10,8DEC10,28MAR11,20APR11,15JUN11
  6. PLAVIX [Concomitant]
  7. ACETYLSALICYLIC ACID [Concomitant]
  8. ZYRTEC [Concomitant]
  9. OMEGA-3 [Concomitant]
     Dosage: THERAPY DATES:28JUL10,8DEC10,28MAR11,20APR11,15JUN11
  10. FISH OIL [Concomitant]
     Dosage: THERAPY DATES:28JUL10,8DEC10,28MAR11,20APR11,15JUN11
  11. VITAMIN D3 [Concomitant]
     Dosage: 1 DF = 2000UNS,THERAPY DATES:28JUL10,8DEC10,28MAR11,20APR11,15JUN11
  12. VITAMIN B [Concomitant]
     Dosage: INJ.THERAPY DATES:28JUL10,8DEC10,28MAR11,20APR11,15JUN11
  13. IRON [Concomitant]
     Dosage: THERAPY DATES:28JUL10,8DEC10,28MAR11,20APR11,15JUN11
  14. CENTRUM [Concomitant]
     Dosage: THERAPY DATES:28JUL10,8DEC10,28MAR11,20APR11,15JUN11

REACTIONS (4)
  - Dermatitis acneiform [Recovered/Resolved]
  - Erythema [Unknown]
  - Upper respiratory tract infection [Recovering/Resolving]
  - Diarrhoea [Unknown]
